FAERS Safety Report 6986679 (Version 4)
Quarter: 2014Q3

REPORT INFORMATION
  Report Type: Spontaneous
  Country: FR (occurrence: None)
  Receive Date: 20090424
  Receipt Date: 20140908
  Transmission Date: 20150326
  Serious: Yes (Hospitalization, Other)
  Sender: FDA-Public Use
  Company Number: 6050444

PATIENT
  Age: 59 Year
  Sex: Female

DRUGS (8)
  1. ACEPROMETAZINE [Suspect]
     Active Substance: ACEPROMETAZINE
     Indication: PRODUCT USED FOR UNKNOWN INDICATION
     Dosage: ORAL
     Route: 048
  2. PROZAC [Suspect]
     Active Substance: FLUOXETINE HYDROCHLORIDE
     Indication: DEPRESSION
  3. PERICIAZINE [Suspect]
     Active Substance: PERICIAZINE
     Indication: PRODUCT USED FOR UNKNOWN INDICATION
  4. LEVOTHYROXINE SODIUM. [Suspect]
     Active Substance: LEVOTHYROXINE SODIUM
     Indication: PRODUCT USED FOR UNKNOWN INDICATION
     Dosage: ORAL
     Route: 048
  5. ATORVASTATIN CALCIUM. [Suspect]
     Active Substance: ATORVASTATIN CALCIUM
     Indication: PRODUCT USED FOR UNKNOWN INDICATION
  6. BENFLUOREX HYDROCHLORIDE [Suspect]
     Active Substance: BENFLUOREX HYDROCHLORIDE
     Indication: DIABETES MELLITUS
     Dosage: 3 DF (3 DF, 1 D), ORAL
     Route: 048
     Dates: start: 1998, end: 2008
  7. DIACEREIN [Suspect]
     Active Substance: DIACEREIN
     Indication: PRODUCT USED FOR UNKNOWN INDICATION
     Dosage: ORAL
     Route: 048
  8. AMITRIPTYLINE HYDROCHLORIDE. [Suspect]
     Active Substance: AMITRIPTYLINE HYDROCHLORIDE
     Indication: PRODUCT USED FOR UNKNOWN INDICATION

REACTIONS (20)
  - Mitral valve stenosis [None]
  - Bronchiolitis [None]
  - QRS axis abnormal [None]
  - Left ventricular hypertrophy [None]
  - Mitral valve disease [None]
  - Diastolic dysfunction [None]
  - Overweight [None]
  - Aortic valve incompetence [None]
  - Rheumatic heart disease [None]
  - Restrictive pulmonary disease [None]
  - Ascites [None]
  - Left ventricular failure [None]
  - Left atrial dilatation [None]
  - Renal failure acute [None]
  - Mitral valve incompetence [None]
  - Pleural effusion [None]
  - Pulmonary arterial hypertension [None]
  - Hepatojugular reflux [None]
  - Carbon monoxide diffusing capacity decreased [None]
  - Pneumonia [None]

NARRATIVE: CASE EVENT DATE: 200803
